FAERS Safety Report 4740476-3 (Version None)
Quarter: 2005Q3

REPORT INFORMATION
  Report Type: 
  Country: None (occurrence: None)
  Receive Date: 20050810
  Receipt Date: 20040322
  Transmission Date: 20060218
  Serious: No
  Sender: FDA-Public Use
  Company Number: US-2004-BP-02296BP

PATIENT
  Sex: Male

DRUGS (7)
  1. MIRAPEX [Suspect]
     Indication: PARKINSON'S DISEASE
     Route: 048
  2. MIRAPEX [Suspect]
     Route: 048
  3. SINEMET [Concomitant]
     Indication: PARKINSON'S DISEASE
  4. PARLODEL [Concomitant]
     Indication: PARKINSON'S DISEASE
  5. ELDEPRYL [Concomitant]
     Indication: PARKINSON'S DISEASE
  6. ATIVAN [Concomitant]
     Indication: ANXIETY
  7. KLONOPIN [Concomitant]
     Indication: ANXIETY

REACTIONS (6)
  - COLON CANCER [None]
  - DELUSION [None]
  - HALLUCINATION [None]
  - LOSS OF CONSCIOUSNESS [None]
  - MURDER [None]
  - PROSTATE CANCER [None]
